FAERS Safety Report 7028071-7 (Version None)
Quarter: 2010Q3

REPORT INFORMATION
  Report Type: 
  Country: None (occurrence: None)
  Receive Date: 20100930
  Receipt Date: 20100924
  Transmission Date: 20110219
  Serious: Yes (Hospitalization, Other)
  Sender: FDA-Public Use
  Company Number: WAES 1007USA03742

PATIENT
  Age: 56 Year
  Sex: Female

DRUGS (10)
  1. ZOCOR [Suspect]
     Indication: ACUTE CORONARY SYNDROME
     Dosage: PO
     Route: 048
     Dates: start: 20091206
  2. PLACEBO (UNSPECIFIED) [Suspect]
     Indication: ACUTE CORONARY SYNDROME
     Dosage: PO
     Route: 048
     Dates: start: 20091206
  3. TAB PLACEBO (UNSPECIFIED) [Suspect]
     Indication: ACUTE CORONARY SYNDROME
     Dosage: PO
     Route: 048
     Dates: start: 20091206
  4. APIDRA [Concomitant]
  5. CADEX [Concomitant]
  6. LANTUS [Concomitant]
  7. VASODIP [Concomitant]
  8. ASPIRIN [Concomitant]
  9. CLOPIDOGREL BISULFATE [Concomitant]
  10. LOSARTAN POTASSIUM [Concomitant]

REACTIONS (1)
  - ENDOMETRIAL CANCER [None]
